FAERS Safety Report 12740228 (Version 7)
Quarter: 2017Q1

REPORT INFORMATION
  Report Type: Spontaneous
  Country: DE (occurrence: DE)
  Receive Date: 20160913
  Receipt Date: 20170106
  Transmission Date: 20170428
  Serious: Yes (Hospitalization, Other)
  Sender: FDA-Public Use
  Company Number: DE-SA-2016SA137798

PATIENT
  Age: 25 Year
  Sex: Female
  Weight: 85 kg

DRUGS (5)
  1. LEMTRADA [Suspect]
     Active Substance: ALEMTUZUMAB
     Indication: MULTIPLE SCLEROSIS
     Route: 041
     Dates: start: 20160531, end: 20160604
  2. PREDNISOLON [Concomitant]
     Active Substance: PREDNISOLONE
     Indication: PROPHYLAXIS
     Route: 042
     Dates: start: 20160531, end: 20160604
  3. FENISTIL [Concomitant]
     Active Substance: DIMETHINDENE
     Route: 042
     Dates: start: 20160530, end: 20160604
  4. TECFIDERA [Concomitant]
     Active Substance: DIMETHYL FUMARATE
  5. TECFIDERA [Concomitant]
     Active Substance: DIMETHYL FUMARATE
     Dates: start: 201601

REACTIONS (7)
  - Proteinuria [Unknown]
  - Rash [Unknown]
  - Hepato-lenticular degeneration [Unknown]
  - Hepatic enzyme increased [Not Recovered/Not Resolved]
  - Pruritus [Recovered/Resolved]
  - Ceruloplasmin decreased [Unknown]
  - Flushing [Recovered/Resolved]

NARRATIVE: CASE EVENT DATE: 2016
